FAERS Safety Report 16400444 (Version 1)
Quarter: 2019Q2

REPORT INFORMATION
  Report Type: Report from Study
  Country: US (occurrence: US)
  Receive Date: 20190606
  Receipt Date: 20190606
  Transmission Date: 20190711
  Serious: Yes (Other)
  Sender: FDA-Public Use
  Company Number: US-JNJFOC-20190605637

PATIENT
  Sex: Male

DRUGS (1)
  1. IMBRUVICA [Suspect]
     Active Substance: IBRUTINIB
     Indication: LYMPHOCYTIC LEUKAEMIA
     Route: 048
     Dates: start: 20190522

REACTIONS (5)
  - Decreased appetite [Unknown]
  - Vascular rupture [Unknown]
  - Weight decreased [Unknown]
  - White blood cell count increased [Unknown]
  - Arthralgia [Unknown]
